FAERS Safety Report 8660468 (Version 2)
Quarter: 2012Q4

REPORT INFORMATION
  Report Type: 
  Country: US (occurrence: US)
  Receive Date: 20120711
  Receipt Date: 20120904
  Transmission Date: 20130627
  Serious: Yes (Hospitalization)
  Sender: FDA-Public Use
  Company Number: US-BAXTER-2012BAX010474

PATIENT
  Age: 61 Year
  Sex: Female

DRUGS (2)
  1. DIANEAL LOW CALCIUM [Suspect]
     Indication: PERITONEAL DIALYSIS
     Dosage: 12640 ml
     Route: 033
     Dates: start: 20090807
  2. DIANEAL LOW CALCIUM [Suspect]
     Indication: PERITONEAL DIALYSIS
     Dosage: 12640 ml
     Route: 033
     Dates: start: 20090807

REACTIONS (5)
  - Medical device complication [Recovered/Resolved]
  - Hernia [Recovered/Resolved]
  - Abdominal pain [Recovering/Resolving]
  - Procedural pain [Not Recovered/Not Resolved]
  - Discomfort [Unknown]
